FAERS Safety Report 9842950 (Version 2)
Quarter: 2014Q1

REPORT INFORMATION
  Report Type: Report from Study
  Country: RO (occurrence: RO)
  Receive Date: 20140124
  Receipt Date: 20140214
  Transmission Date: 20141002
  Serious: Yes (Hospitalization)
  Sender: FDA-Public Use
  Company Number: RO-UCBSA-109396

PATIENT
  Age: 77 Year
  Sex: Male
  Weight: 60 kg

DRUGS (6)
  1. CERTOLIZUMAB PEGOL [Suspect]
     Indication: RHEUMATOID ARTHRITIS
     Dosage: 17 DOSES
     Route: 058
     Dates: start: 20130528, end: 20140114
  2. METHOTREXATE [Suspect]
     Indication: RHEUMATOID ARTHRITIS
     Route: 048
     Dates: start: 201304, end: 20140114
  3. FOLIC ACID [Concomitant]
     Indication: PROPHYLAXIS
     Route: 048
     Dates: start: 201304
  4. PREDNISONE [Concomitant]
     Indication: RHEUMATOID ARTHRITIS
     Route: 048
     Dates: start: 201304
  5. OMEPRAZOLE [Concomitant]
     Indication: GASTROOESOPHAGEAL REFLUX DISEASE
     Route: 048
     Dates: start: 2012
  6. TRIMETAZIDINUM [Concomitant]
     Indication: HYPERTENSION
     Route: 048
     Dates: start: 201107

REACTIONS (4)
  - Stomatitis haemorrhagic [Recovered/Resolved]
  - Bone marrow toxicity [Recovered/Resolved]
  - Pulmonary fibrosis [Not Recovered/Not Resolved]
  - Nasopharyngitis [Recovered/Resolved]
